FAERS Safety Report 6457040-0 (Version None)
Quarter: 2009Q4

REPORT INFORMATION
  Report Type: 
  Country: None (occurrence: None)
  Receive Date: 20091125
  Receipt Date: 20091119
  Transmission Date: 20100525
  Serious: Yes (Hospitalization)
  Sender: FDA-Public Use
  Company Number: A0795485A

PATIENT
  Age: 58 Year
  Sex: Female

DRUGS (8)
  1. REQUIP XL [Suspect]
     Indication: RESTLESS LEGS SYNDROME
     Dosage: 24MG PER DAY
     Route: 048
  2. REQUIP [Concomitant]
     Indication: RESTLESS LEGS SYNDROME
     Dosage: 8MG THREE TIMES PER DAY
     Route: 048
     Dates: start: 20090511, end: 20090608
  3. EFFEXOR [Concomitant]
     Indication: DEPRESSION
  4. BUMETANIDE [Concomitant]
     Dosage: 2MG TWICE PER DAY
  5. SPIRONOLACTONE [Concomitant]
     Dosage: 25MG TWICE PER DAY
  6. POTASSIUM [Concomitant]
     Dosage: 10MEQ TWICE PER DAY
  7. CYANOCOBALAMIN [Concomitant]
     Route: 030
  8. UNKNOWN [Concomitant]
     Dosage: 400MG TWICE PER DAY

REACTIONS (13)
  - ABDOMINAL DISCOMFORT [None]
  - ASTHENIA [None]
  - BLOOD PRESSURE DECREASED [None]
  - CARDIAC FAILURE [None]
  - DIZZINESS [None]
  - FLUID OVERLOAD [None]
  - GASTRITIS [None]
  - HAEMATEMESIS [None]
  - ILL-DEFINED DISORDER [None]
  - OEDEMA PERIPHERAL [None]
  - SKIN DISORDER [None]
  - SLEEP DISORDER [None]
  - VOMITING [None]
